FAERS Safety Report 7751308-3 (Version None)
Quarter: 2011Q3

REPORT INFORMATION
  Report Type: 
  Country: None (occurrence: None)
  Receive Date: 20110914
  Receipt Date: 20110831
  Transmission Date: 20111222
  Serious: Yes (Other)
  Sender: FDA-Public Use
  Company Number: FR-TYCO HEALTHCARE/MALLINCKRODT-T201101681

PATIENT
  Sex: Male

DRUGS (2)
  1. ULTRA-TECHNEKOW FM [Suspect]
     Indication: BONE SCAN
     Dosage: 648 MBQ, SINGLE
     Route: 042
     Dates: start: 20110609, end: 20110609
  2. TECHNESCAN [Suspect]
     Indication: BONE SCAN
     Dosage: UNK
     Route: 042
     Dates: start: 20110609, end: 20110609

REACTIONS (1)
  - PHLEBITIS [None]
